FAERS Safety Report 21596761 (Version 1)
Quarter: 2022Q4

REPORT INFORMATION
  Report Type: Report from Study
  Country: AR (occurrence: AR)
  Receive Date: 20221115
  Receipt Date: 20221115
  Transmission Date: 20230113
  Serious: Yes (Hospitalization)
  Sender: FDA-Public Use
  Company Number: AR-Merck Healthcare KGaA-9335586

PATIENT
  Sex: Male

DRUGS (3)
  1. CETUXIMAB [Suspect]
     Active Substance: CETUXIMAB
     Indication: Head and neck cancer metastatic
     Dosage: 438 MG, WEEKLY (1/W)
     Route: 065
     Dates: start: 20220308
  2. CETUXIMAB [Suspect]
     Active Substance: CETUXIMAB
     Dosage: 438 MG, 2/M
     Route: 065
  3. CETUXIMAB [Suspect]
     Active Substance: CETUXIMAB
     Dosage: 438 MG, 2/M
     Route: 065
     Dates: start: 20221025

REACTIONS (6)
  - Immunodeficiency [Recovered/Resolved]
  - Anaemia [Recovered/Resolved]
  - Blood potassium decreased [Recovered/Resolved]
  - Decreased appetite [Recovered/Resolved]
  - Blood magnesium decreased [Not Recovered/Not Resolved]
  - Off label use [Unknown]
